FAERS Safety Report 25220748 (Version 1)
Quarter: 2025Q2

REPORT INFORMATION
  Report Type: Report from Study
  Country: US (occurrence: US)
  Receive Date: 20250421
  Receipt Date: 20250421
  Transmission Date: 20250716
  Serious: Yes (Other)
  Sender: PUMA
  Company Number: US-PUMA BIOTECHNOLOGY, LTD.-2025-PUM-US000333

PATIENT

DRUGS (2)
  1. NERLYNX [Suspect]
     Active Substance: NERATINIB
     Indication: Breast cancer female
     Dosage: 160 MG (4 TABLETS), DAILY
     Route: 048
     Dates: start: 20250124, end: 2025
  2. NERLYNX [Suspect]
     Active Substance: NERATINIB
     Dosage: 240 MG (6TABS), DAILY
     Route: 048
     Dates: start: 2025, end: 20250410

REACTIONS (5)
  - Heart rate increased [Recovering/Resolving]
  - Tinnitus [Recovering/Resolving]
  - Diarrhoea [Unknown]
  - Fatigue [Unknown]
  - Drug titration error [Unknown]

NARRATIVE: CASE EVENT DATE: 20250101
